FAERS Safety Report 8587012-1 (Version None)
Quarter: 2012Q3

REPORT INFORMATION
  Report Type: 
  Country: None (occurrence: None)
  Receive Date: 20120810
  Receipt Date: 20120730
  Transmission Date: 20120928
  Serious: No
  Sender: FDA-Public Use
  Company Number: US-009507513-1208USA003287

PATIENT

DRUGS (1)
  1. CLARITIN [Suspect]
     Indication: NASOPHARYNGITIS
     Dosage: 10 MG, BID
     Dates: start: 20120730

REACTIONS (2)
  - OVERDOSE [None]
  - TREMOR [None]
